FAERS Safety Report 5426348-X (Version None)
Quarter: 2007Q3

REPORT INFORMATION
  Report Type: 
  Country: None (occurrence: None)
  Receive Date: 20070827
  Receipt Date: 20070814
  Transmission Date: 20080115
  Serious: Yes (Other)
  Sender: FDA-Public Use
  Company Number: PHHO2007NZ13671

PATIENT
  Sex: Male

DRUGS (3)
  1. CLOZARIL [Suspect]
     Indication: SCHIZOPHRENIA
     Dosage: 600 MG, UNK
     Dates: start: 20051122
  2. ATROPINE [Concomitant]
  3. TERAZOSIN HCL [Concomitant]
     Dosage: 5 MG, UNK

REACTIONS (4)
  - BLADDER SPASM [None]
  - CONSTIPATION [None]
  - SALIVARY HYPERSECRETION [None]
  - URINARY RETENTION [None]
